FAERS Safety Report 20325841 (Version 1)
Quarter: 2022Q1

REPORT INFORMATION
  Report Type: Other
  Country: CA (occurrence: CA)
  Receive Date: 20220112
  Receipt Date: 20220112
  Transmission Date: 20220423
  Serious: Yes (Other)
  Sender: FDA-Public Use
  Company Number: CA-CELLTRION INC.-2022CA000073

PATIENT

DRUGS (6)
  1. TRASTUZUMAB [Suspect]
     Active Substance: TRASTUZUMAB
     Indication: Breast cancer
     Dosage: 405.0 MILLIGRAM
     Route: 042
  2. TRASTUZUMAB [Suspect]
     Active Substance: TRASTUZUMAB
     Dosage: 540.0 MILLIGRAM
     Route: 042
  3. TRASTUZUMAB [Suspect]
     Active Substance: TRASTUZUMAB
     Dosage: 544.0 MILLIGRAM
     Route: 042
  4. FEMARA [Suspect]
     Active Substance: LETROZOLE
     Indication: Product used for unknown indication
     Dosage: 2.5 MILLIGRAM
     Route: 065
  5. ACETAMINOPHEN [Concomitant]
     Active Substance: ACETAMINOPHEN
     Indication: Product used for unknown indication
     Dosage: 650.0 MILLIGRAM
     Route: 048
  6. DIPHENHYDRAMINE HYDROCHLORIDE [Concomitant]
     Active Substance: DIPHENHYDRAMINE HYDROCHLORIDE
     Indication: Product used for unknown indication
     Dosage: 50.0 MILLIGRAM
     Route: 048

REACTIONS (21)
  - Breast pain [Not Recovered/Not Resolved]
  - Catheter site bruise [Not Recovered/Not Resolved]
  - Catheter site erythema [Not Recovered/Not Resolved]
  - Depressed mood [Not Recovered/Not Resolved]
  - General physical health deterioration [Not Recovered/Not Resolved]
  - Memory impairment [Not Recovered/Not Resolved]
  - Weight increased [Not Recovered/Not Resolved]
  - Anxiety [Not Recovered/Not Resolved]
  - Arthritis [Not Recovered/Not Resolved]
  - Cardiac disorder [Not Recovered/Not Resolved]
  - Decreased appetite [Not Recovered/Not Resolved]
  - Diarrhoea [Not Recovered/Not Resolved]
  - Dry mouth [Not Recovered/Not Resolved]
  - Fatigue [Not Recovered/Not Resolved]
  - Hot flush [Not Recovered/Not Resolved]
  - Insomnia [Not Recovered/Not Resolved]
  - Muscle spasms [Not Recovered/Not Resolved]
  - Peripheral swelling [Not Recovered/Not Resolved]
  - Somnolence [Not Recovered/Not Resolved]
  - Urinary tract infection [Not Recovered/Not Resolved]
  - Device occlusion [Not Recovered/Not Resolved]
